FAERS Safety Report 22003752 (Version 1)
Quarter: 2023Q1

REPORT INFORMATION
  Report Type: Spontaneous
  Country: US (occurrence: US)
  Receive Date: 20230217
  Receipt Date: 20230217
  Transmission Date: 20230418
  Serious: Yes (Death, Hospitalization, Other)
  Sender: FDA-Public Use
  Company Number: US-ADVANZ PHARMA-202301000934

PATIENT

DRUGS (7)
  1. CLONIDINE [Suspect]
     Active Substance: CLONIDINE
     Dosage: UNK, INGESTION
     Route: 048
  2. BUPROPION [Suspect]
     Active Substance: BUPROPION
     Dosage: UNK, INGESTION (ER)
     Route: 048
  3. CLONAZEPAM [Suspect]
     Active Substance: CLONAZEPAM
     Dosage: UNK, INGESTION
     Route: 048
  4. PALIPERIDONE [Suspect]
     Active Substance: PALIPERIDONE
     Dosage: UNK, INGESTION (ER)
     Route: 048
  5. LAMOTRIGINE [Suspect]
     Active Substance: LAMOTRIGINE
     Dosage: UNK, INGESTION
     Route: 048
  6. ONDANSETRON [Suspect]
     Active Substance: ONDANSETRON
     Dosage: UNK, INGESTION
     Route: 048
  7. OMEPRAZOLE [Suspect]
     Active Substance: OMEPRAZOLE
     Dosage: UNK, INGESTION
     Route: 048

REACTIONS (1)
  - Drug abuse [Fatal]
